FAERS Safety Report 20172948 (Version 4)
Quarter: 2023Q4

REPORT INFORMATION
  Report Type: Spontaneous
  Country: US (occurrence: US)
  Receive Date: 20211211
  Receipt Date: 20231218
  Transmission Date: 20240110
  Serious: No
  Sender: FDA-Public Use
  Company Number: US-GSKCCFUS-Case-01237380_AE-72533

PATIENT
  Age: 74 Year
  Sex: Male

DRUGS (1)
  1. TRELEGY ELLIPTA [Suspect]
     Active Substance: FLUTICASONE FUROATE\UMECLIDINIUM BROMIDE\VILANTEROL TRIFENATATE
     Indication: Asthma
     Dosage: 1 PUFF(S), QD 100/62.5/25 MCG
     Route: 055
     Dates: start: 201701

REACTIONS (3)
  - Chest discomfort [Unknown]
  - Product dose omission issue [Unknown]
  - Product complaint [Unknown]

NARRATIVE: CASE EVENT DATE: 20211206
